FAERS Safety Report 8903935 (Version 1)
Quarter: 2012Q4

REPORT INFORMATION
  Report Type: 
  Country: US (occurrence: US)
  Receive Date: 20121113
  Receipt Date: 20121113
  Transmission Date: 20130627
  Serious: No
  Sender: FDA-Public Use
  Company Number: US-AMGEN-USASP2012009723

PATIENT
  Age: 53 Year
  Sex: Male

DRUGS (10)
  1. ENBREL [Suspect]
     Indication: RHEUMATOID ARTHRITIS
     Dates: start: 20110513
  2. TOPAMAX [Concomitant]
  3. CYMBALTA [Concomitant]
  4. ZOFRAN                             /00955301/ [Concomitant]
  5. CENTRUM                            /00554501/ [Concomitant]
  6. PROVIGIL [Concomitant]
  7. KLONOPIN [Concomitant]
  8. MAGNESIUM [Concomitant]
  9. SOMA [Concomitant]
  10. MECLIZINE                          /00072801/ [Concomitant]

REACTIONS (1)
  - Oedema peripheral [Not Recovered/Not Resolved]
